FAERS Safety Report 4637436-X (Version None)
Quarter: 2005Q2

REPORT INFORMATION
  Report Type: 
  Country: None (occurrence: None)
  Receive Date: 20050418
  Receipt Date: 20050412
  Transmission Date: 20051028
  Serious: Yes (Life-Threatening, Hospitalization)
  Sender: FDA-Public Use
  Company Number: 200510977EU

PATIENT
  Age: 60 Year
  Sex: Male

DRUGS (2)
  1. LANTUS [Suspect]
     Indication: DIABETES MELLITUS
  2. FORTUM [Suspect]
     Indication: LOCALISED INFECTION
     Dates: start: 20050124, end: 20050127

REACTIONS (1)
  - DRUG HYPERSENSITIVITY [None]
